FAERS Safety Report 5596471-8 (Version None)
Quarter: 2008Q1

REPORT INFORMATION
  Report Type: 
  Country: None (occurrence: None)
  Receive Date: 20080118
  Receipt Date: 20080103
  Transmission Date: 20080703
  Serious: Yes (Other)
  Sender: FDA-Public Use
  Company Number: NO-PFIZER INC-2007071541

PATIENT
  Age: 41 Year
  Sex: Female

DRUGS (10)
  1. LYRICA [Suspect]
     Indication: DEPRESSION
     Route: 048
  2. LYRICA [Suspect]
     Indication: MENTAL DISORDER
  3. LAMICTAL [Suspect]
     Indication: DEPRESSION
     Route: 048
  4. LAMICTAL [Suspect]
     Indication: MENTAL DISORDER
  5. CIPRALEX [Suspect]
     Indication: DEPRESSION
  6. CIPRALEX [Suspect]
     Indication: MENTAL DISORDER
  7. SEROQUEL [Suspect]
     Indication: DEPRESSION
     Route: 048
  8. SEROQUEL [Suspect]
     Indication: MENTAL DISORDER
  9. STESOLID [Suspect]
     Indication: DEPRESSION
  10. STESOLID [Suspect]
     Indication: MENTAL DISORDER

REACTIONS (1)
  - ABORTION SPONTANEOUS [None]
